FAERS Safety Report 10177335 (Version 2)
Quarter: 2014Q2

REPORT INFORMATION
  Report Type: Spontaneous
  Country: DK (occurrence: DK)
  Receive Date: 20140516
  Receipt Date: 20140613
  Transmission Date: 20141212
  Serious: Yes (Life-Threatening, Hospitalization, Other)
  Sender: FDA-Public Use
  Company Number: DK-BAYER-2014-068686

PATIENT
  Age: 72 Year
  Sex: Female
  Weight: 82 kg

DRUGS (9)
  1. ACETYLSALICYLIC ACID (} 100 MG) [Suspect]
     Indication: ISCHAEMIC HEART DISEASE PROPHYLAXIS
     Dosage: 75 MG DAILY
     Route: 048
  2. ANGIOX [Suspect]
     Indication: PERCUTANEOUS CORONARY INTERVENTION
     Dosage: 0.75 MG/KG, BOLUS DOSE
     Route: 042
     Dates: start: 20140410, end: 20140410
  3. ANGIOX [Suspect]
     Indication: PERCUTANEOUS CORONARY INTERVENTION
     Dosage: 1.4 MG/KG/HR
     Route: 042
     Dates: start: 20140410, end: 20140410
  4. CLOPIDOGREL [Suspect]
     Indication: PERCUTANEOUS CORONARY INTERVENTION
     Dosage: 600 MG
     Route: 048
     Dates: start: 20140409, end: 20140409
  5. HYDROCHLOROTHIAZIDE [Concomitant]
     Indication: HYPERTENSION
  6. HYDROCHLOROTHIAZIDE [Concomitant]
     Indication: HYPERTENSION
  7. LERCANIDIPINE [Concomitant]
     Indication: HYPERTENSION
  8. LOSARTAN [Concomitant]
     Indication: HYPERTENSION
  9. METOPROLOL [Concomitant]
     Indication: HYPERTENSION

REACTIONS (3)
  - Coronary artery dissection [Recovered/Resolved]
  - Post procedural haemorrhage [Recovered/Resolved]
  - Ventricular fibrillation [Recovered/Resolved]
